FAERS Safety Report 6226429-7 (Version None)
Quarter: 2009Q2

REPORT INFORMATION
  Report Type: 
  Country: None (occurrence: None)
  Receive Date: 20090612
  Receipt Date: 20090514
  Transmission Date: 20091009
  Serious: No
  Sender: FDA-Public Use
  Company Number: US-ABBOTT-09P-163-0573846-00

PATIENT
  Sex: Female

DRUGS (4)
  1. HUMIRA [Suspect]
     Indication: PSORIASIS
     Route: 058
     Dates: start: 20090101, end: 20090201
  2. HUMIRA [Suspect]
     Dosage: RESTARTED WHEN FLU RESOLVED
     Route: 058
     Dates: start: 20090317
  3. LEVOXYL [Concomitant]
     Indication: HYPOTHYROIDISM
     Route: 048
     Dates: start: 20050101
  4. HYDROCORTISONE [Concomitant]
     Indication: BLOOD CORTISOL ABNORMAL
     Route: 048
     Dates: start: 20050101

REACTIONS (3)
  - DRUG DOSE OMISSION [None]
  - INFLUENZA [None]
  - NASOPHARYNGITIS [None]
